FAERS Safety Report 5849166-7 (Version None)
Quarter: 2008Q3

REPORT INFORMATION
  Report Type: 
  Country: None (occurrence: None)
  Receive Date: 20080818
  Receipt Date: 20080818
  Transmission Date: 20090109
  Serious: Yes (Other)
  Sender: FDA-Public Use
  Company Number: None

PATIENT
  Age: 22 Year
  Sex: Male
  Weight: 97 kg

DRUGS (13)
  1. CEFTAZIDIME [Suspect]
     Indication: PNEUMONIA
     Dosage: 1 G Q8H IV
     Route: 042
     Dates: start: 20080610, end: 20080616
  2. ACETAMINOPHEN [Concomitant]
  3. DUONEB [Concomitant]
  4. BACLOFEN [Concomitant]
  5. LOVENOX [Concomitant]
  6. FENTANYL TRANSDERMAL SYSTEM [Concomitant]
  7. PREVACID [Concomitant]
  8. ATIVAN [Concomitant]
  9. LOPRESSOR [Concomitant]
  10. FLAGYL [Concomitant]
  11. POTASSIUM CHLORIDE [Concomitant]
  12. KEPPRA [Concomitant]
  13. VANCOMYCIN HYDROCHLORIDE [Concomitant]

REACTIONS (1)
  - HEPATIC ENZYME INCREASED [None]
